FAERS Safety Report 5626651-4 (Version None)
Quarter: 2008Q1

REPORT INFORMATION
  Report Type: 
  Country: None (occurrence: None)
  Receive Date: 20080214
  Receipt Date: 20080208
  Transmission Date: 20080703
  Serious: Yes (Other)
  Sender: FDA-Public Use
  Company Number: US-BOEHRINGER INGELHEIM GMBH, GERMANY-2008-BP-02071BP

PATIENT
  Sex: Male

DRUGS (3)
  1. AGGRENOX [Suspect]
  2. ZESTRIL [Concomitant]
  3. COREG CR [Concomitant]

REACTIONS (1)
  - CEREBROVASCULAR ACCIDENT [None]
